FAERS Safety Report 8483644-X (Version None)
Quarter: 2012Q3

REPORT INFORMATION
  Report Type: 
  Country: None (occurrence: None)
  Receive Date: 20120702
  Receipt Date: 20120626
  Transmission Date: 20120928
  Serious: Yes (Other)
  Sender: FDA-Public Use
  Company Number: GB-BAYER-2012-063395

PATIENT
  Age: 24 Year
  Sex: Female

DRUGS (2)
  1. ORAL CONTRACEPTIVE NOS [Concomitant]
  2. CLOTRIMAZOLE [Suspect]
     Dosage: 500 MG, ONCE
     Route: 067
     Dates: start: 20120621

REACTIONS (1)
  - VAGINAL HAEMORRHAGE [None]
